FAERS Safety Report 25802472 (Version 1)
Quarter: 2025Q3

REPORT INFORMATION
  Report Type: Spontaneous
  Country: US (occurrence: None)
  Receive Date: 20250912
  Receipt Date: 20250912
  Transmission Date: 20251021
  Serious: Yes (Death)
  Sender: FDA-CTU
  Company Number: None

PATIENT
  Age: 85 Year
  Sex: Female

DRUGS (5)
  1. KESIMPTA [Suspect]
     Active Substance: OFATUMUMAB
     Indication: Multiple sclerosis
     Dosage: 20MG EVERY MONTH UNDER  SKIN??
     Route: 058
     Dates: start: 20240131
  2. AMANTADINE [Concomitant]
     Active Substance: AMANTADINE
  3. LOSARTAN [Concomitant]
     Active Substance: LOSARTAN
  4. NEBIVOLOL [Concomitant]
     Active Substance: NEBIVOLOL
  5. TRIAMTERENE 75MG/ HCTZ 50MG TABLETS [Concomitant]

REACTIONS (1)
  - Death [None]

NARRATIVE: CASE EVENT DATE: 20250906
